FAERS Safety Report 13836015 (Version 1)
Quarter: 2017Q3

REPORT INFORMATION
  Report Type: Spontaneous
  Country: US (occurrence: US)
  Receive Date: 20170804
  Receipt Date: 20170804
  Transmission Date: 20171127
  Serious: Yes (Other)
  Sender: FDA-Public Use
  Company Number: US-ALLERGAN-1520041US

PATIENT
  Age: 34 Year
  Sex: Male
  Weight: 79.37 kg

DRUGS (7)
  1. REFRESH LACRI-LUBE [Suspect]
     Active Substance: MINERAL OIL\PETROLATUM
     Indication: DRY EYE
     Dosage: 0.25 INCH (AM AND PM)
     Route: 047
     Dates: start: 20130208, end: 20150903
  2. REFRESH LACRI-LUBE [Suspect]
     Active Substance: MINERAL OIL\PETROLATUM
     Dosage: 0.25 INCH (AM AND PM)
     Route: 047
     Dates: start: 20130208, end: 20150903
  3. REFRESH LACRI-LUBE [Suspect]
     Active Substance: MINERAL OIL\PETROLATUM
     Dosage: 0.25 INCH (AM AND PM)
     Route: 047
     Dates: start: 20130208, end: 20150903
  4. OXYGEN. [Concomitant]
     Active Substance: OXYGEN
     Dosage: UNK UNK, QHS
  5. REFRESH PLUS [Concomitant]
     Active Substance: CARBOXYMETHYLCELLULOSE SODIUM
     Indication: DRY EYE
     Dosage: 2 GTT, QD
     Route: 047
  6. REFRESH LACRI-LUBE [Suspect]
     Active Substance: MINERAL OIL\PETROLATUM
     Dosage: 0.25 INCH (AM AND PM)
     Route: 047
     Dates: start: 20130208, end: 20150903
  7. LEXAPRO [Concomitant]
     Active Substance: ESCITALOPRAM OXALATE
     Dosage: 10 MG, QD
     Route: 048

REACTIONS (7)
  - Conjunctivitis [Not Recovered/Not Resolved]
  - Corneal neovascularisation [Unknown]
  - Suspected product contamination [Unknown]
  - Lagophthalmos [Not Recovered/Not Resolved]
  - Corneal scar [Unknown]
  - Keratopathy [Not Recovered/Not Resolved]
  - Chemical burns of eye [Unknown]

NARRATIVE: CASE EVENT DATE: 201501
